FAERS Safety Report 15616954 (Version 3)
Quarter: 2019Q2

REPORT INFORMATION
  Report Type: Spontaneous
  Country: US (occurrence: US)
  Receive Date: 20181114
  Receipt Date: 20190523
  Transmission Date: 20190711
  Serious: No
  Sender: FDA-Public Use
  Company Number: US-ASTRAZENECA-2008BM02129

PATIENT
  Age: 20150 Day
  Sex: Male
  Weight: 195 kg

DRUGS (10)
  1. ACTOS [Concomitant]
     Active Substance: PIOGLITAZONE HYDROCHLORIDE
     Indication: DIABETES MELLITUS
     Dosage: UNK
  2. BYETTA [Suspect]
     Active Substance: EXENATIDE
     Indication: TYPE 2 DIABETES MELLITUS
     Route: 058
     Dates: start: 2007
  3. BYDUREON [Suspect]
     Active Substance: EXENATIDE
     Indication: TYPE 2 DIABETES MELLITUS
     Route: 058
     Dates: start: 2017, end: 20171015
  4. BYDUREON BCISE [Suspect]
     Active Substance: EXENATIDE
     Indication: TYPE 2 DIABETES MELLITUS
     Route: 058
     Dates: start: 20171015
  5. GLIMEPIRIDE. [Concomitant]
     Active Substance: GLIMEPIRIDE
     Indication: DIABETES MELLITUS
     Dosage: UNK
  6. BYETTA [Suspect]
     Active Substance: EXENATIDE
     Indication: TYPE 2 DIABETES MELLITUS
     Route: 058
     Dates: start: 20071029
  7. EXENATIDE. [Concomitant]
     Active Substance: EXENATIDE
  8. METFORMIN [Concomitant]
     Active Substance: METFORMIN HYDROCHLORIDE
     Indication: DIABETES MELLITUS
     Dosage: UNK
  9. EXENATIDE. [Suspect]
     Active Substance: EXENATIDE
     Dosage: 10.0UG UNKNOWN
     Route: 065
  10. GLYSET [Concomitant]
     Active Substance: MIGLITOL
     Indication: DIABETES MELLITUS
     Dosage: UNK

REACTIONS (6)
  - Blood glucose increased [Not Recovered/Not Resolved]
  - Nausea [Unknown]
  - Incorrect dose administered by device [Unknown]
  - Device leakage [Unknown]
  - Glycosylated haemoglobin increased [Unknown]
  - Device malfunction [Unknown]

NARRATIVE: CASE EVENT DATE: 20071102
